FAERS Safety Report 5657943-0 (Version None)
Quarter: 2008Q1

REPORT INFORMATION
  Report Type: 
  Country: None (occurrence: None)
  Receive Date: 20080305
  Receipt Date: 20080222
  Transmission Date: 20080703
  Serious: Yes (Disabling, Other)
  Sender: FDA-Public Use
  Company Number: OSCN-NO-0801L-0014

PATIENT
  Age: 34 Year
  Sex: Female
  Weight: 43 kg

DRUGS (19)
  1. OMNISCAN [Suspect]
     Indication: SHUNT STENOSIS
     Dosage: SEVERAL DOSES, EACH OF 20 ML, OVER A SIX-YEAR PERIOD, SINGLE DOSE
  2. GANDOPENTATE DIMEGLUMINE [Concomitant]
  3. ARANESP [Concomitant]
  4. SACCHARATED IRON OXIDE (VENOFER) [Concomitant]
  5. NADROPARIN (FRAXIPARIN) [Concomitant]
  6. FENTANYL (DUROGESIC) [Concomitant]
  7. DICLOFENAC [Concomitant]
  8. MACROGOL WITH ELECTROLYTES [Concomitant]
  9. PANTOPRAZOLE (PANTOZOL) [Concomitant]
  10. PLAVIX [Concomitant]
  11. POLYSTYRENE SULFONIC ACID (SORBISTERIL POWDER) [Concomitant]
  12. ALFACALCIDOL (ETALPHA) [Concomitant]
  13. RENAGEL [Concomitant]
  14. IBUPROFEN [Concomitant]
  15. VALIUM [Concomitant]
  16. IMODIUM [Concomitant]
  17. PREDNISONE [Concomitant]
  18. IMMUNOSUPPRESSIVE AGENTS [Concomitant]
  19. GANCICLOVIR [Concomitant]

REACTIONS (2)
  - FOCAL GLOMERULOSCLEROSIS [None]
  - SCAR [None]
